FAERS Safety Report 8196756-5 (Version None)
Quarter: 2012Q1

REPORT INFORMATION
  Report Type: 
  Country: None (occurrence: None)
  Receive Date: 20120309
  Receipt Date: 20120229
  Transmission Date: 20120608
  Serious: Yes (Other)
  Sender: FDA-Public Use
  Company Number: PHHY2012OM017907

PATIENT
  Sex: Male
  Weight: 80 kg

DRUGS (3)
  1. AMLODIPINE BESYLATE AND VALSARTAN [Suspect]
     Indication: HYPERTENSION
     Dosage: 160 MG VALS AND 5 MG AMLO DAILY
     Route: 048
     Dates: start: 20101129
  2. AMARYL [Concomitant]
     Indication: DIABETES MELLITUS
     Dosage: 30 MG
     Dates: start: 20070101
  3. GLUCOPHAGE [Concomitant]
     Indication: DIABETES MELLITUS
     Dosage: 500 MG
     Dates: start: 20070101

REACTIONS (1)
  - MYOCARDIAL INFARCTION [None]
